FAERS Safety Report 10469174 (Version 1)
Quarter: 2014Q3

REPORT INFORMATION
  Report Type: Spontaneous
  Country: DE (occurrence: None)
  Receive Date: 20140919
  Receipt Date: 20140919
  Transmission Date: 20150326
  Serious: Yes (Other)
  Sender: FDA-Public Use
  Company Number: 2014-20306

PATIENT
  Sex: Female
  Weight: 90 kg

DRUGS (4)
  1. BROMAZEPAM (BROMAZEPAM) [Concomitant]
     Active Substance: BROMAZEPAM
  2. TOLTERODINE (TOLTERODINE) [Concomitant]
  3. ULIPRISTAL ACETATE [Suspect]
     Active Substance: ULIPRISTAL ACETATE
     Indication: UTERINE LEIOMYOMA
     Dates: start: 20140205, end: 20140504
  4. DICLOFENAC (DICLOFENAC) [Concomitant]
     Active Substance: DICLOFENAC SODIUM

REACTIONS (2)
  - Medication error [None]
  - Cervical dysplasia [None]
